FAERS Safety Report 14943788 (Version 2)
Quarter: 2018Q2

REPORT INFORMATION
  Report Type: Report from Study
  Country: US (occurrence: US)
  Receive Date: 20180528
  Receipt Date: 20180611
  Transmission Date: 20180711
  Serious: Yes (Hospitalization, Other)
  Sender: FDA-Public Use
  Company Number: US-BRISTOL-MYERS SQUIBB COMPANY-BMS-2018-047639

PATIENT
  Age: 65 Year
  Sex: Female
  Weight: 44 kg

DRUGS (2)
  1. ENTINOSTAT [Suspect]
     Active Substance: ENTINOSTAT
     Indication: ADENOCARCINOMA PANCREAS
     Dosage: 5 MG, UNK
     Route: 048
     Dates: start: 20171106, end: 20180521
  2. NIVOLUMAB [Suspect]
     Active Substance: NIVOLUMAB
     Indication: ADENOCARCINOMA PANCREAS
     Dosage: 240 MG, UNK
     Route: 042
     Dates: start: 20171120, end: 20180521

REACTIONS (2)
  - Renal tubular acidosis [Unknown]
  - Electrolyte imbalance [Unknown]

NARRATIVE: CASE EVENT DATE: 20180521
